FAERS Safety Report 8558315 (Version 2)
Quarter: 2013Q2

REPORT INFORMATION
  Report Type: Spontaneous
  Country: US (occurrence: US)
  Receive Date: 20120511
  Receipt Date: 20130510
  Transmission Date: 20140414
  Serious: Yes (Hospitalization)
  Sender: FDA-Public Use
  Company Number: US-GLAXOSMITHKLINE-A0959081A

PATIENT
  Sex: Female

DRUGS (5)
  1. TYKERB [Suspect]
     Indication: BREAST CANCER
     Dosage: 1250MG PER DAY
     Route: 048
  2. FASLODEX [Concomitant]
  3. LEXAPRO [Concomitant]
  4. XANAX [Concomitant]
  5. AMBIEN [Concomitant]

REACTIONS (2)
  - Nausea [Unknown]
  - Diarrhoea [Unknown]
